FAERS Safety Report 13755833 (Version 1)
Quarter: 2017Q3

REPORT INFORMATION
  Report Type: Spontaneous
  Country: FR (occurrence: FR)
  Receive Date: 20170714
  Receipt Date: 20170714
  Transmission Date: 20171127
  Serious: Yes (Life-Threatening, Hospitalization)
  Sender: FDA-Public Use
  Company Number: PHHY2017FR103126

PATIENT
  Age: 15 Year
  Sex: Female

DRUGS (6)
  1. BACTRIM [Suspect]
     Active Substance: SULFAMETHOXAZOLE\TRIMETHOPRIM
     Indication: INFECTION PROPHYLAXIS
     Dosage: 800 MG, TIW
     Route: 048
  2. PRIMPERAN [Suspect]
     Active Substance: METOCLOPRAMIDE HYDROCHLORIDE
     Indication: NAUSEA
     Route: 042
     Dates: start: 20170609, end: 20170612
  3. EMEND [Suspect]
     Active Substance: APREPITANT
     Indication: PRODUCT USED FOR UNKNOWN INDICATION
     Route: 048
     Dates: start: 20170609, end: 20170611
  4. CISPLATINE MYLAN [Suspect]
     Active Substance: CISPLATIN
     Indication: PHARYNGEAL CANCER
     Dosage: 100 MG/M2, UNK
     Route: 042
     Dates: start: 20170609, end: 20170610
  5. FLUOROURACILE ACCORD [Suspect]
     Active Substance: FLUOROURACIL
     Indication: PHARYNGEAL CANCER
     Dosage: 500 MG/M2, UNK
     Route: 042
     Dates: start: 20170610, end: 20170612
  6. ZOPHREN [Suspect]
     Active Substance: ONDANSETRON
     Indication: NAUSEA
     Dosage: 2 DF, QD
     Route: 042
     Dates: start: 20170609, end: 20170612

REACTIONS (2)
  - Left ventricular dysfunction [Unknown]
  - Cardiogenic shock [Unknown]

NARRATIVE: CASE EVENT DATE: 20170612
